FAERS Safety Report 7087655-0 (Version None)
Quarter: 2010Q4

REPORT INFORMATION
  Report Type: 
  Country: None (occurrence: None)
  Receive Date: 20101108
  Receipt Date: 20101029
  Transmission Date: 20110411
  Serious: No
  Sender: FDA-Public Use
  Company Number: US-BIOGENIDEC-2010BI038414

PATIENT
  Age: 30 Year
  Sex: Female

DRUGS (2)
  1. TYSABRI [Suspect]
     Indication: MULTIPLE SCLEROSIS
     Route: 042
     Dates: start: 20100614, end: 20100701
  2. TYSABRI [Suspect]
     Route: 042
     Dates: start: 20090101

REACTIONS (4)
  - DIZZINESS [None]
  - PANIC REACTION [None]
  - PHOTOSENSITIVITY REACTION [None]
  - VISION BLURRED [None]
